FAERS Safety Report 5095481-7 (Version None)
Quarter: 2006Q3

REPORT INFORMATION
  Report Type: 
  Country: None (occurrence: None)
  Receive Date: 20060901
  Receipt Date: 20060901
  Transmission Date: 20061208
  Serious: Yes (Hospitalization)
  Sender: FDA-Public Use
  Company Number: None

PATIENT
  Sex: Male
  Weight: 86.1834 kg

DRUGS (1)
  1. ACTONEL [Suspect]
     Indication: ARTHRITIS
     Dosage: 30MG WEEKLY ORAL
     Route: 048

REACTIONS (4)
  - DRUG EFFECT DECREASED [None]
  - PAIN IN JAW [None]
  - TOOTH EXTRACTION [None]
  - TOOTH INFECTION [None]
